FAERS Safety Report 4858116-1 (Version None)
Quarter: 2005Q4

REPORT INFORMATION
  Report Type: 
  Country: None (occurrence: None)
  Receive Date: 20051219
  Receipt Date: 20050513
  Transmission Date: 20060501
  Serious: No
  Sender: FDA-Public Use
  Company Number: US-GLAXOSMITHKLINE-A0558453A

PATIENT
  Age: 50 Year
  Sex: Female

DRUGS (1)
  1. EQUATE NTS 14MG [Suspect]
     Indication: DRUG USE FOR UNKNOWN INDICATION
     Dates: start: 20050507

REACTIONS (5)
  - ANOREXIA [None]
  - ANXIETY [None]
  - CRYING [None]
  - NERVOUSNESS [None]
  - NICOTINE DEPENDENCE [None]
